FAERS Safety Report 12954514 (Version 2)
Quarter: 2020Q4

REPORT INFORMATION
  Report Type: Spontaneous
  Country: CA (occurrence: CA)
  Receive Date: 20161118
  Receipt Date: 20201222
  Transmission Date: 20210113
  Serious: Yes (Other)
  Sender: FDA-Public Use
  Company Number: CA-009507513-1611CAN007220

PATIENT
  Sex: Male

DRUGS (8)
  1. DOXEPIN HYDROCHLORIDE. [Suspect]
     Active Substance: DOXEPIN HYDROCHLORIDE
     Dosage: UNK
     Dates: start: 2004
  2. TOLTERODINE [Suspect]
     Active Substance: TOLTERODINE
     Dosage: UNK
     Dates: start: 2004
  3. CLONIDINE. [Suspect]
     Active Substance: CLONIDINE
     Dosage: UNK
  4. QUETIAPINE FUMARATE. [Suspect]
     Active Substance: QUETIAPINE FUMARATE
     Dosage: UNK
  5. INVEGA SUSTENNA [Suspect]
     Active Substance: PALIPERIDONE PALMITATE
     Dosage: UNK, FORMULATION: SUSPENSION (EXTENDED RELEASE)
     Dates: start: 2004
  6. RAMIPRIL. [Suspect]
     Active Substance: RAMIPRIL
     Dosage: UNK
     Dates: start: 2004
  7. JANUVIA [Suspect]
     Active Substance: SITAGLIPTIN PHOSPHATE
     Dosage: UNK
     Dates: start: 2004
  8. TESTOSTERONE. [Suspect]
     Active Substance: TESTOSTERONE
     Dosage: UNK
     Dates: start: 2004

REACTIONS (6)
  - Diarrhoea [Not Recovered/Not Resolved]
  - Hallucination [Not Recovered/Not Resolved]
  - Constipation [Not Recovered/Not Resolved]
  - Dry mouth [Not Recovered/Not Resolved]
  - Muscle twitching [Not Recovered/Not Resolved]
  - Seizure [Not Recovered/Not Resolved]
